FAERS Safety Report 10697586 (Version 2)
Quarter: 2015Q1

REPORT INFORMATION
  Report Type: Spontaneous
  Country: FR (occurrence: None)
  Receive Date: 20150106
  Receipt Date: 20150129
  Transmission Date: 20150721
  Serious: Yes (Life-Threatening, Other)
  Sender: FDA-Public Use
  Company Number: 2014AMD00148

PATIENT
  Age: 49 Year
  Sex: Female

DRUGS (6)
  1. EPINEPHRINE (EPINEPHRINE) INJECTION [Suspect]
     Active Substance: EPINEPHRINE
     Route: 042
  2. CISATRACURIUM [Concomitant]
     Active Substance: CISATRACURIUM
  3. SUFENTANIL [Concomitant]
     Active Substance: SUFENTANIL
  4. ATROPINE [Concomitant]
     Active Substance: ATROPINE
  5. KETAMINE [Concomitant]
     Active Substance: KETAMINE
  6. PROPOFOL. [Concomitant]
     Active Substance: PROPOFOL

REACTIONS (9)
  - Stress cardiomyopathy [None]
  - Ventricular fibrillation [None]
  - Hypertensive crisis [None]
  - Cardiac arrest [None]
  - Accidental exposure to product [None]
  - Cardiogenic shock [None]
  - Acute kidney injury [None]
  - Hepatocellular injury [None]
  - Left ventricular failure [None]
